FAERS Safety Report 15517614 (Version 3)
Quarter: 2019Q1

REPORT INFORMATION
  Report Type: Spontaneous
  Country: CZ (occurrence: CZ)
  Receive Date: 20181017
  Receipt Date: 20190212
  Transmission Date: 20190417
  Serious: Yes (Hospitalization, Other)
  Sender: FDA-Public Use
  Company Number: CZ-MYLANLABS-2018M1075126

PATIENT
  Age: 70 Year
  Sex: Male

DRUGS (6)
  1. GEMCITABINE [Suspect]
     Active Substance: GEMCITABINE\GEMCITABINE HYDROCHLORIDE
     Dosage: UNK, 2/M
     Route: 065
     Dates: start: 201402
  2. ABRAXANE [Concomitant]
     Active Substance: PACLITAXEL
     Dosage: UNK, 2/M(ONE IN 14 DAYS   )
     Route: 065
     Dates: start: 201711
  3. GEMCITABINE [Suspect]
     Active Substance: GEMCITABINE\GEMCITABINE HYDROCHLORIDE
     Dosage: ONE IN 14 DAYS
     Route: 065
     Dates: start: 201604, end: 201711
  4. PACLITAXEL. [Suspect]
     Active Substance: PACLITAXEL
     Indication: ADENOCARCINOMA PANCREAS
     Dosage: UNK
     Route: 065
  5. GEMCITABINE [Suspect]
     Active Substance: GEMCITABINE\GEMCITABINE HYDROCHLORIDE
     Indication: PANCREATIC CARCINOMA
     Dosage: UNK
     Route: 042
  6. ABRAXANE [Concomitant]
     Active Substance: PACLITAXEL
     Indication: PANCREATIC CARCINOMA
     Dosage: UNK
     Route: 065

REACTIONS (13)
  - Malignant neoplasm progression [Unknown]
  - Metastases to liver [Unknown]
  - Metastases to lung [Unknown]
  - Metastases to bone [Unknown]
  - Metastases to lymph nodes [Unknown]
  - Renal failure [Recovered/Resolved]
  - Dehydration [Recovered/Resolved]
  - Pneumonia [Recovered/Resolved]
  - Bone marrow failure [Recovered/Resolved]
  - Neutropenia [Unknown]
  - Neurotoxicity [Recovered/Resolved]
  - Cardiac failure [Recovered/Resolved]
  - Alopecia [Unknown]

NARRATIVE: CASE EVENT DATE: 2016
